FAERS Safety Report 13005791 (Version 1)
Quarter: 2016Q4

REPORT INFORMATION
  Report Type: Spontaneous
  Country: CH (occurrence: CH)
  Receive Date: 20161207
  Receipt Date: 20161207
  Transmission Date: 20170207
  Serious: Yes (Hospitalization)
  Sender: FDA-Public Use
  Company Number: CH-PFIZER INC-2016559783

PATIENT
  Age: 68 Year
  Sex: Female

DRUGS (19)
  1. RESYL [Concomitant]
  2. SERETIDE [Concomitant]
     Active Substance: FLUTICASONE PROPIONATE\SALMETEROL XINAFOATE
  3. MOTILIUM [Concomitant]
     Active Substance: DOMPERIDONE
     Dosage: 10 MG
  4. VITAMIN D3 STREULI [Concomitant]
  5. CELLUVISC /00007002/ [Concomitant]
  6. DAFALGAN [Concomitant]
     Active Substance: ACETAMINOPHEN
     Dosage: UNK MG, UNK
  7. SPIRIVA [Concomitant]
     Active Substance: TIOTROPIUM BROMIDE MONOHYDRATE
  8. VENLAFAXINE HCL [Suspect]
     Active Substance: VENLAFAXINE HYDROCHLORIDE
     Dosage: 150 MG, 1X/DAY (1-0-0-0)
     Dates: start: 201602, end: 20161111
  9. PANTOZOL [Concomitant]
     Active Substance: PANTOPRAZOLE SODIUM
     Dosage: 40 MG
  10. TEMESTA [Suspect]
     Active Substance: LORAZEPAM
     Dosage: 1 MG, MAX. 3X/24 H
  11. TOREM /01036501/ [Suspect]
     Active Substance: TORSEMIDE
     Dosage: 10 MG, 1X/DAY (1-0-0-0)
     Dates: start: 201602, end: 20161111
  12. FLUIMUCIL [Concomitant]
     Active Substance: ACETYLCYSTEINE
     Dosage: 600 MG, UNK
  13. RHINOMER [Concomitant]
  14. AKINETON [Concomitant]
     Active Substance: BIPERIDEN HYDROCHLORIDE
  15. SERESTA [Suspect]
     Active Substance: OXAZEPAM
     Dosage: 52.5 MG, DAILY: 15 MG (0-0.5-0.5-2.5)
     Dates: start: 201602
  16. SEROQUEL [Concomitant]
     Active Substance: QUETIAPINE FUMARATE
     Dosage: MAX. 4X 1 TABLET, 200 MG
  17. PRADIF [Concomitant]
     Active Substance: TAMSULOSIN HYDROCHLORIDE
     Dosage: 400 UG
  18. KALIUM HAUSMANN EFFERVETTES [Concomitant]
  19. REDORMIN [Concomitant]
     Dosage: 250 MG

REACTIONS (1)
  - Hyponatraemia [Recovered/Resolved]

NARRATIVE: CASE EVENT DATE: 20161111
